FAERS Safety Report 13381174 (Version 10)
Quarter: 2019Q3

REPORT INFORMATION
  Report Type: Spontaneous
  Country: US (occurrence: US)
  Receive Date: 20170329
  Receipt Date: 20190930
  Transmission Date: 20191004
  Serious: Yes (Hospitalization, Other)
  Sender: FDA-Public Use
  Company Number: US-PFIZER INC-2017132638

PATIENT
  Age: 60 Year
  Sex: Male
  Weight: 100 kg

DRUGS (26)
  1. LYRICA [Suspect]
     Active Substance: PREGABALIN
     Dosage: 200 MG, UNK
     Route: 048
  2. PREDNISONE. [Concomitant]
     Active Substance: PREDNISONE
     Indication: SARCOIDOSIS
     Dosage: 25 MG, UNK
  3. PREDNISONE. [Concomitant]
     Active Substance: PREDNISONE
     Dosage: 5 MG, UNK (EVERY 2 WEEKS )
  4. PLAQUENIL [Concomitant]
     Active Substance: HYDROXYCHLOROQUINE SULFATE
     Indication: SARCOIDOSIS
     Dosage: 200 MG, 1X/DAY
     Route: 048
     Dates: start: 201409
  5. LOSARTAN. [Concomitant]
     Active Substance: LOSARTAN
     Indication: BLOOD PRESSURE ABNORMAL
     Dosage: 100 MG, 1X/DAY
     Route: 048
     Dates: start: 201502
  6. ZOLPIDEM [Concomitant]
     Active Substance: ZOLPIDEM TARTRATE
     Indication: SLEEP DISORDER
     Dosage: 10 MG, 1X/DAY (ONCE A NIGHT)
     Route: 048
     Dates: start: 201604
  7. LYRICA [Suspect]
     Active Substance: PREGABALIN
     Indication: SARCOIDOSIS
     Dosage: 150 MG, 3X/DAY
     Route: 048
     Dates: start: 201606, end: 20170405
  8. PREDNISONE. [Concomitant]
     Active Substance: PREDNISONE
     Dosage: 20 MG, DAILY
     Route: 048
  9. ALIVE! WHOLE FOOD ENERGIZER MULTI-VITAMIN [Concomitant]
     Indication: SUPPLEMENTATION THERAPY
     Dosage: 1 DF, DAILY
     Route: 048
     Dates: start: 2010
  10. REMICADE [Concomitant]
     Active Substance: INFLIXIMAB
     Indication: SARCOIDOSIS
     Dosage: 500 UG, UNK (INTRAVENOUS INFUSION EVERY SIX WEEKS)
     Route: 042
     Dates: start: 201602
  11. REMICADE [Concomitant]
     Active Substance: INFLIXIMAB
     Dosage: 500 UG, UNK (500MCG IV INFUSION OVER 4 HOURS EVERY 6 WEEKS/ INFUSION WAS EVERY 8 WEEKS FOR 8 MONTHS)
     Route: 041
     Dates: start: 201602
  12. AMBIEN [Concomitant]
     Active Substance: ZOLPIDEM TARTRATE
     Indication: INSOMNIA
     Dosage: 12.5 MG, UNK
  13. PREDNISONE. [Concomitant]
     Active Substance: PREDNISONE
     Dosage: 20 MG, DAILY
     Route: 048
  14. ASPIRIN. [Concomitant]
     Active Substance: ASPIRIN
     Dosage: 81 MG, UNK
  15. VORICONAZOLE. [Concomitant]
     Active Substance: VORICONAZOLE
     Indication: ASPERGILLUS INFECTION
     Dosage: 400 MG, 2X/DAY
     Route: 048
     Dates: start: 201703
  16. LYRICA [Suspect]
     Active Substance: PREGABALIN
     Dosage: 150 MG, 3X/DAY
     Route: 048
     Dates: start: 201608
  17. GABAPENTIN. [Concomitant]
     Active Substance: GABAPENTIN
     Indication: NEUROPATHY PERIPHERAL
     Dosage: 1200 MG, 3X/DAY (ONE AND A HALF CAPSULES)
     Route: 048
     Dates: start: 201603
  18. PREDNISONE. [Concomitant]
     Active Substance: PREDNISONE
     Dosage: 20 MG, 1X/DAY
     Route: 048
     Dates: start: 201409
  19. PREDNISONE. [Concomitant]
     Active Substance: PREDNISONE
     Dosage: 40 MG, 1X/DAY
  20. PREDNISONE. [Concomitant]
     Active Substance: PREDNISONE
     Dosage: 2 MG, DAILY (TWO 1MG  TABLETS)
     Route: 048
  21. AZATHIOPRINE. [Concomitant]
     Active Substance: AZATHIOPRINE
     Indication: SARCOIDOSIS
     Dosage: 50 MG, 3X/DAY
     Route: 048
     Dates: start: 201511
  22. LYRICA [Suspect]
     Active Substance: PREGABALIN
     Indication: SMALL FIBRE NEUROPATHY
     Dosage: 100 MG, 4X/DAY
  23. PREDNISONE. [Concomitant]
     Active Substance: PREDNISONE
     Dosage: 80 MG, 1X/DAY
     Route: 048
     Dates: start: 201408
  24. LYRICA [Suspect]
     Active Substance: PREGABALIN
     Indication: NEUROPATHY PERIPHERAL
     Dosage: 150 MG, 3X/DAY
     Route: 048
     Dates: start: 20160801, end: 20170406
  25. PREDNISONE. [Concomitant]
     Active Substance: PREDNISONE
     Dosage: 10 MG, UNK (DAILY FOR 7 DAYS, THEN TAKE 3 TABLETS BY MOUTH DAILY FOR WEEK 2, THEN TAKE 2 TABLETS)
     Route: 048
  26. IMURAN [Concomitant]
     Active Substance: AZATHIOPRINE
     Indication: SARCOIDOSIS
     Dosage: UNK (THREE A DAY)
     Dates: start: 201409

REACTIONS (6)
  - Intentional product use issue [Unknown]
  - Pain [Unknown]
  - Bronchopulmonary aspergillosis [Recovering/Resolving]
  - Cardiac flutter [Not Recovered/Not Resolved]
  - Pneumonia pseudomonal [Recovered/Resolved]
  - Feeling abnormal [Recovered/Resolved]

NARRATIVE: CASE EVENT DATE: 201702
